FAERS Safety Report 6246983-9 (Version None)
Quarter: 2009Q2

REPORT INFORMATION
  Report Type: 
  Country: None (occurrence: None)
  Receive Date: 20090626
  Receipt Date: 20090616
  Transmission Date: 20091009
  Serious: Yes (Other)
  Sender: FDA-Public Use
  Company Number: AU-JNJFOC-20090606102

PATIENT
  Sex: Male
  Weight: 80 kg

DRUGS (4)
  1. REMICADE [Suspect]
     Indication: COLITIS ULCERATIVE
     Route: 042
  2. AZATHIOPRINE [Concomitant]
     Indication: COLITIS ULCERATIVE
  3. GLUCOSAMINE [Concomitant]
     Indication: OSTEOARTHRITIS
  4. OMEPRAZOLE [Concomitant]
     Indication: OESOPHAGEAL DISORDER

REACTIONS (3)
  - JOINT EFFUSION [None]
  - MUSCULOSKELETAL PAIN [None]
  - SYSTEMIC LUPUS ERYTHEMATOSUS [None]
